FAERS Safety Report 8471254-X (Version None)
Quarter: 2012Q2

REPORT INFORMATION
  Report Type: 
  Country: None (occurrence: None)
  Receive Date: 20120621
  Receipt Date: 20120605
  Transmission Date: 20120825
  Serious: Yes (Hospitalization)
  Sender: FDA-Public Use
  Company Number: 20120354

PATIENT
  Age: 58 Year
  Sex: Female

DRUGS (4)
  1. VENOFER [Suspect]
     Indication: PRODUCT USED FOR UNKNOWN INDICATION
     Dosage: INTRAVENOUS
     Route: 042
  2. ATENOLOL [Concomitant]
  3. SODIUM BICARBONATE [Concomitant]
  4. HYDROCODONE BITARTRATE + ACETAMINOPHEN [Concomitant]

REACTIONS (6)
  - ACUTE GENERALISED EXANTHEMATOUS PUSTULOSIS [None]
  - BLOOD UREA INCREASED [None]
  - RASH PAPULOSQUAMOUS [None]
  - RASH GENERALISED [None]
  - SKIN EXFOLIATION [None]
  - BLOOD CREATININE INCREASED [None]
